FAERS Safety Report 4996984-3 (Version None)
Quarter: 2006Q2

REPORT INFORMATION
  Report Type: 
  Country: None (occurrence: None)
  Receive Date: 20060509
  Receipt Date: 20060502
  Transmission Date: 20061013
  Serious: Yes (Hospitalization)
  Sender: FDA-Public Use
  Company Number: JP-BRISTOL-MYERS SQUIBB COMPANY-13370119

PATIENT
  Age: 78 Year
  Sex: Male

DRUGS (4)
  1. SINEMET [Suspect]
     Indication: PARKINSON'S DISEASE
     Dosage: DOSAGE: 75MG/300MG
  2. DOPS [Concomitant]
  3. AMANTADINE HCL [Concomitant]
  4. SELEGILINE HCL [Concomitant]

REACTIONS (2)
  - GASTROINTESTINAL HYPOMOTILITY [None]
  - NEUROLEPTIC MALIGNANT SYNDROME [None]
